FAERS Safety Report 6702984-5 (Version None)
Quarter: 2010Q2

REPORT INFORMATION
  Report Type: 
  Country: None (occurrence: None)
  Receive Date: 20100429
  Receipt Date: 20100429
  Transmission Date: 20101027
  Serious: Yes (Hospitalization)
  Sender: FDA-Public Use
  Company Number: None

PATIENT
  Sex: Female
  Weight: 77.1115 kg

DRUGS (1)
  1. SYMBICORT [Suspect]
     Indication: BRONCHIECTASIS
     Dosage: 2X TWICE DALEY OTHER
     Route: 050
     Dates: start: 20100423, end: 20100428

REACTIONS (9)
  - CHILLS [None]
  - COUGH [None]
  - DIZZINESS [None]
  - DYSSTASIA [None]
  - FEELING COLD [None]
  - HEADACHE [None]
  - MUSCLE SPASMS [None]
  - NAUSEA [None]
  - PALPITATIONS [None]
